FAERS Safety Report 24630350 (Version 2)
Quarter: 2024Q4

REPORT INFORMATION
  Report Type: Other
  Country: US (occurrence: US)
  Receive Date: 20241118
  Receipt Date: 20241206
  Transmission Date: 20250115
  Serious: Yes (Other)
  Sender: TRAVERE THERAPEUTICS
  Company Number: US-TRAVERE-2024TVT01170

PATIENT
  Age: 77 Year
  Sex: Male

DRUGS (14)
  1. FILSPARI [Suspect]
     Active Substance: SPARSENTAN
     Indication: IgA nephropathy
     Route: 048
     Dates: start: 20241102
  2. FILSPARI [Suspect]
     Active Substance: SPARSENTAN
     Route: 048
     Dates: start: 20241114
  3. ASPIRIN [Concomitant]
     Active Substance: ASPIRIN
  4. CARVEDILOL [Concomitant]
     Active Substance: CARVEDILOL
  5. DILTIAZEM [Concomitant]
     Active Substance: DILTIAZEM
  6. HYDRALAZINE [Concomitant]
     Active Substance: HYDRALAZINE HYDROCHLORIDE
  7. LANTUS [Concomitant]
     Active Substance: INSULIN GLARGINE
  8. NOVOLOG [Concomitant]
     Active Substance: INSULIN ASPART
  9. ROSUVASTATIN [Concomitant]
     Active Substance: ROSUVASTATIN
  10. TARPEYO [Concomitant]
     Active Substance: BUDESONIDE
  11. CETIRIZINE [Concomitant]
     Active Substance: CETIRIZINE HYDROCHLORIDE
  12. NITROGLYCERIN [Concomitant]
     Active Substance: NITROGLYCERIN
  13. VITAMIN B12 [Concomitant]
     Active Substance: CYANOCOBALAMIN
  14. VITAMIN D3 [Concomitant]
     Active Substance: CHOLECALCIFEROL

REACTIONS (1)
  - Blood pressure systolic increased [Unknown]

NARRATIVE: CASE EVENT DATE: 20241107
